FAERS Safety Report 9394352 (Version 1)
Quarter: 2013Q3

REPORT INFORMATION
  Report Type: Spontaneous
  Country: IT (occurrence: IT)
  Receive Date: 20130711
  Receipt Date: 20130711
  Transmission Date: 20140515
  Serious: Yes (Hospitalization, Disabling)
  Sender: FDA-Public Use
  Company Number: IT-ROCHE-1247348

PATIENT
  Age: 37 Year
  Sex: Female

DRUGS (10)
  1. DIAZEPAM [Suspect]
     Indication: SUICIDE ATTEMPT
     Dosage: 20 GTT DAILY
     Route: 048
     Dates: start: 20130705, end: 20130705
  2. DIAZEPAM [Suspect]
     Route: 065
  3. TOPAMAX [Suspect]
     Indication: SUICIDE ATTEMPT
     Route: 048
     Dates: start: 20130705, end: 20130705
  4. TOPAMAX [Suspect]
     Route: 065
  5. XERISTAR [Suspect]
     Indication: SUICIDE ATTEMPT
     Route: 048
     Dates: start: 20130705, end: 20130705
  6. PARACETAMOL [Suspect]
     Indication: SUICIDE ATTEMPT
     Route: 048
     Dates: start: 20130705, end: 20130705
  7. NATECAL D3 [Concomitant]
  8. FOLIN [Concomitant]
  9. DEPAKINE CHRONO [Concomitant]
     Route: 065
  10. CIPRALEX [Concomitant]
     Route: 065

REACTIONS (2)
  - Suicide attempt [Recovered/Resolved]
  - Toxicity to various agents [Recovered/Resolved]
